FAERS Safety Report 16826415 (Version 2)
Quarter: 2021Q4

REPORT INFORMATION
  Report Type: Report from Study
  Country: JP (occurrence: JP)
  Receive Date: 20190919
  Receipt Date: 20211206
  Transmission Date: 20220304
  Serious: Yes (Other)
  Sender: FDA-Public Use
  Company Number: JP-PFIZER INC-2019322929

PATIENT
  Age: 4 Year
  Sex: Male
  Weight: 18.6 kg

DRUGS (13)
  1. BESPONSA [Suspect]
     Active Substance: INOTUZUMAB OZOGAMICIN
     Indication: Acute lymphocytic leukaemia recurrent
     Dosage: 0.8 MG/M2, 1X/DAY
     Route: 041
     Dates: start: 20190726, end: 20190726
  2. BESPONSA [Suspect]
     Active Substance: INOTUZUMAB OZOGAMICIN
     Dosage: 0.5 MG/M2, 1X/DAY
     Route: 041
     Dates: start: 20190814, end: 20190814
  3. AMLODIPINE [Concomitant]
     Active Substance: AMLODIPINE BESYLATE
     Indication: Hypertension
     Dosage: 5 MG, DAILY
     Route: 048
     Dates: start: 20190711
  4. MAGNESIUM OXIDE [Concomitant]
     Active Substance: MAGNESIUM OXIDE
     Indication: Constipation
     Dosage: 0.33 G, 1X/DAY
     Route: 048
     Dates: start: 20180413
  5. SULFAMETHOXAZOLE\TRIMETHOPRIM [Concomitant]
     Active Substance: SULFAMETHOXAZOLE\TRIMETHOPRIM
     Indication: Pneumocystis jirovecii pneumonia
     Dosage: 0.4 G, 1X/DAY
     Route: 048
     Dates: start: 20190412
  6. PRANLUKAST [Concomitant]
     Active Substance: PRANLUKAST
     Indication: Asthma
     Dosage: 5 MG, 2X/DAY
     Route: 048
     Dates: start: 20190412
  7. FAMOTIDINE [Concomitant]
     Active Substance: FAMOTIDINE
     Indication: Prophylaxis against gastrointestinal ulcer
     Dosage: 5 MG, 2X/DAY
     Dates: start: 20190412
  8. CALONAL [Concomitant]
     Active Substance: ACETAMINOPHEN
     Indication: Bone pain
     Dosage: 200 MG, 4X/DAY
     Route: 048
     Dates: start: 20190621
  9. ACYCLOVIR [Concomitant]
     Active Substance: ACYCLOVIR
     Indication: Herpes virus infection
     Dosage: 200 MG, 3X/DAY
     Route: 048
     Dates: start: 20190413
  10. MICAFUNGIN SODIUM [Concomitant]
     Active Substance: MICAFUNGIN SODIUM
     Indication: Fungal infection
     Dosage: 50 MG, 1X/DAY
     Route: 041
     Dates: start: 20190413
  11. ATARAX-P [HYDROXYZINE EMBONATE] [Concomitant]
     Indication: Insomnia
     Dosage: 25 G, 1X/DAY
     Route: 041
     Dates: start: 20190723, end: 20190725
  12. ATARAX-P [HYDROXYZINE EMBONATE] [Concomitant]
     Indication: Prophylaxis
  13. DEXAMETHASONE [Concomitant]
     Active Substance: DEXAMETHASONE
     Indication: Prophylaxis
     Dosage: 6.6 MG, 1X/DAY
     Route: 041
     Dates: start: 20190725, end: 20190725

REACTIONS (4)
  - Renal disorder [Recovered/Resolved]
  - Neoplasm progression [Not Recovered/Not Resolved]
  - Off label use [Unknown]
  - Product use issue [Unknown]

NARRATIVE: CASE EVENT DATE: 20190726
